FAERS Safety Report 14396636 (Version 5)
Quarter: 2018Q1

REPORT INFORMATION
  Report Type: Report from Study
  Country: GB (occurrence: GB)
  Receive Date: 20180116
  Receipt Date: 20180305
  Transmission Date: 20180509
  Serious: Yes (Hospitalization, Other)
  Sender: FDA-Public Use
  Company Number: GB-TEVA-2018-GB-843368

PATIENT
  Age: 30 Year
  Sex: Male

DRUGS (13)
  1. MABTHERA [Suspect]
     Active Substance: RITUXIMAB
     Indication: ACUTE LYMPHOCYTIC LEUKAEMIA
     Dosage: UNKNOWN DOSE, FREQUENCY UNKNOWN
     Route: 042
     Dates: start: 20170511, end: 20170601
  2. METHOTREXATE 45 MG [Suspect]
     Active Substance: METHOTREXATE
     Indication: ACUTE LYMPHOCYTIC LEUKAEMIA
     Route: 048
     Dates: start: 20170814, end: 20170910
  3. KEPIVANCE [Suspect]
     Active Substance: PALIFERMIN
     Indication: ACUTE LYMPHOCYTIC LEUKAEMIA
     Dosage: UNKNOWN DOSE, FREQUENCY UNKNOWN
     Route: 065
  4. ATRIANCE [Suspect]
     Active Substance: NELARABINE
     Route: 065
  5. CYTARABINE 167 MG [Suspect]
     Active Substance: CYTARABINE
     Indication: ACUTE LYMPHOCYTIC LEUKAEMIA
     Route: 042
     Dates: start: 20170821, end: 20170825
  6. G-SCF [Concomitant]
     Indication: NEUTROPENIA
  7. METHOTREXATE 12.5 MG [Suspect]
     Active Substance: METHOTREXATE
     Indication: ACUTE LYMPHOCYTIC LEUKAEMIA
     Route: 037
     Dates: start: 20170822, end: 20170822
  8. ONCASPAR [Suspect]
     Active Substance: PEGASPARGASE
     Indication: ACUTE LYMPHOCYTIC LEUKAEMIA
     Dosage: FREQUENCY UNKNOWN
     Route: 042
     Dates: start: 20170821, end: 20170825
  9. ANTITHROMBIN ALFA [Concomitant]
     Active Substance: ANTITHROMBIN ALFA
     Indication: PROPHYLAXIS
  10. ONDANSETRON [Concomitant]
     Active Substance: ONDANSETRON
     Indication: PROPHYLAXIS
     Dosage: 4 MG, FREQUENCY AS REQUIRED
     Route: 042
     Dates: start: 20170913
  11. MERCAPTOPURINE 150 MG [Suspect]
     Active Substance: MERCAPTOPURINE
     Indication: ACUTE LYMPHOCYTIC LEUKAEMIA
     Dosage: 150 MILLIGRAM DAILY;
     Route: 048
     Dates: start: 20170814, end: 20170910
  12. DOMPERIDONE [Concomitant]
     Active Substance: DOMPERIDONE
     Indication: PROPHYLAXIS
  13. ETOPOSIDE 223 MG [Suspect]
     Active Substance: ETOPOSIDE
     Indication: ACUTE LYMPHOCYTIC LEUKAEMIA
     Dosage: UNKNOWN DOSE, FREQUENCY UNKNOWN
     Route: 042
     Dates: start: 20170821, end: 20170825

REACTIONS (2)
  - Pulmonary embolism [Recovered/Resolved with Sequelae]
  - Tachycardia [Unknown]

NARRATIVE: CASE EVENT DATE: 20170911
